FAERS Safety Report 23458234 (Version 1)
Quarter: 2024Q1

REPORT INFORMATION
  Report Type: Spontaneous
  Country: US (occurrence: US)
  Receive Date: 20240130
  Receipt Date: 20240130
  Transmission Date: 20240410
  Serious: No
  Sender: FDA-Public Use
  Company Number: US-MYLANLABS-2024M1006028

PATIENT
  Sex: Female
  Weight: 68.04 kg

DRUGS (2)
  1. SERTRALINE [Suspect]
     Active Substance: SERTRALINE HYDROCHLORIDE
     Indication: Hormone level abnormal
     Dosage: 200 MILLIGRAM
     Route: 048
  2. PAXLOVID [Concomitant]
     Active Substance: NIRMATRELVIR\RITONAVIR
     Indication: COVID-19
     Dosage: UNK UNK, BID
     Route: 065
     Dates: start: 20240111, end: 20240111

REACTIONS (1)
  - Off label use [Unknown]
